FAERS Safety Report 17457385 (Version 1)
Quarter: 2020Q1

REPORT INFORMATION
  Report Type: Spontaneous
  Country: FR (occurrence: FR)
  Receive Date: 20200225
  Receipt Date: 20200225
  Transmission Date: 20200409
  Serious: Yes (Other)
  Sender: FDA-Public Use
  Company Number: FR-HONG KONG KING-FRIEND INDUSTRIAL COMPANY-2020NKF00003

PATIENT
  Age: 61 Year
  Sex: Female

DRUGS (1)
  1. HEPARIN [Suspect]
     Active Substance: HEPARIN SODIUM
     Dosage: IN THIGHS
     Route: 058

REACTIONS (1)
  - Acute generalised exanthematous pustulosis [Recovered/Resolved]
